FAERS Safety Report 4807466-3 (Version None)
Quarter: 2005Q4

REPORT INFORMATION
  Report Type: 
  Country: None (occurrence: None)
  Receive Date: 20051024
  Receipt Date: 20051013
  Transmission Date: 20060501
  Serious: Yes (Death)
  Sender: FDA-Public Use
  Company Number: CH-JNJFOC-20051003165

PATIENT
  Sex: Male

DRUGS (13)
  1. HALDOL [Suspect]
     Route: 048
  2. HALDOL [Suspect]
     Indication: DRUG USE FOR UNKNOWN INDICATION
     Route: 048
  3. TEGRETOL [Suspect]
     Route: 050
  4. TEGRETOL [Suspect]
     Route: 050
  5. TEGRETOL [Suspect]
     Indication: DRUG USE FOR UNKNOWN INDICATION
     Route: 050
  6. VALIUM [Suspect]
     Route: 048
  7. VALIUM [Suspect]
     Route: 048
  8. VALIUM [Suspect]
     Indication: DRUG USE FOR UNKNOWN INDICATION
     Route: 048
  9. DEPAKENE [Concomitant]
     Route: 048
  10. DEPAKENE [Concomitant]
     Route: 048
  11. DEPAKENE [Concomitant]
     Route: 048
  12. MEFENACID [Concomitant]
     Route: 048
  13. BRUFEN [Concomitant]
     Route: 048

REACTIONS (2)
  - CIRCULATORY COLLAPSE [None]
  - EPILEPSY [None]
